FAERS Safety Report 17628184 (Version 1)
Quarter: 2020Q2

REPORT INFORMATION
  Report Type: Report from Study
  Country: None (occurrence: US)
  Receive Date: 20200405
  Receipt Date: 20200405
  Transmission Date: 20200713
  Serious: Yes (Hospitalization, Other)
  Sender: FDA-Public Use
  Company Number: US-ABBVIE-20K-163-3351604-00

PATIENT
  Sex: Male

DRUGS (1)
  1. HUMIRA [Suspect]
     Active Substance: ADALIMUMAB
     Indication: CROHN^S DISEASE
     Route: 058

REACTIONS (7)
  - Haematoma [Unknown]
  - Staphylococcal infection [Unknown]
  - Catheter site related reaction [Unknown]
  - Abscess [Unknown]
  - Muscle rupture [Unknown]
  - Dermatitis contact [Unknown]
  - Fall [Unknown]
